FAERS Safety Report 10480308 (Version 1)
Quarter: 2014Q3

REPORT INFORMATION
  Report Type: Spontaneous
  Country: GB (occurrence: GB)
  Receive Date: 20140929
  Receipt Date: 20140929
  Transmission Date: 20150326
  Serious: Yes (Other)
  Sender: FDA-Public Use
  Company Number: GB-AMGEN-GBRSP2014073142

PATIENT
  Sex: Female
  Weight: 76 kg

DRUGS (1)
  1. PROLIA [Suspect]
     Active Substance: DENOSUMAB
     Indication: OSTEOPOROSIS POSTMENOPAUSAL
     Dosage: UNK
     Route: 065

REACTIONS (11)
  - Hypertension [Unknown]
  - Immobile [Unknown]
  - Asthenia [Unknown]
  - Back pain [Unknown]
  - Activities of daily living impaired [Unknown]
  - Decreased activity [Unknown]
  - Breast cancer [Unknown]
  - Liver disorder [Unknown]
  - Myocardial infarction [Unknown]
  - Surgery [Unknown]
  - Anxiety [Unknown]
